FAERS Safety Report 12668969 (Version 1)
Quarter: 2016Q3

REPORT INFORMATION
  Report Type: Spontaneous
  Country: US (occurrence: US)
  Receive Date: 20160819
  Receipt Date: 20160819
  Transmission Date: 20161109
  Serious: No
  Sender: FDA-Public Use
  Company Number: US-ASTRAZENECA-2016SE88276

PATIENT
  Age: 69 Year
  Sex: Female
  Weight: 81.6 kg

DRUGS (2)
  1. NEXIUM 24HR [Suspect]
     Active Substance: ESOMEPRAZOLE MAGNESIUM
     Indication: ULCER
     Route: 048
     Dates: start: 201607
  2. NEXIUM 24HR [Suspect]
     Active Substance: ESOMEPRAZOLE MAGNESIUM
     Indication: GASTROOESOPHAGEAL REFLUX DISEASE
     Route: 048
     Dates: start: 201607

REACTIONS (3)
  - Drug dose omission [Unknown]
  - Off label use [Unknown]
  - Vision blurred [Recovering/Resolving]

NARRATIVE: CASE EVENT DATE: 2016
